FAERS Safety Report 14809008 (Version 1)
Quarter: 2018Q2

REPORT INFORMATION
  Report Type: Spontaneous
  Country: TW (occurrence: TW)
  Receive Date: 20180425
  Receipt Date: 20180425
  Transmission Date: 20180711
  Serious: Yes (Other)
  Sender: FDA-Public Use
  Company Number: PHHY2018TW067811

PATIENT
  Age: 52 Year
  Sex: Male

DRUGS (8)
  1. SUTENT [Suspect]
     Active Substance: SUNITINIB MALATE
     Dosage: 12.5 MG, TID
     Route: 065
     Dates: start: 20141202
  2. GLIVEC [Suspect]
     Active Substance: IMATINIB MESYLATE
     Dosage: 200 MG, BID
     Route: 065
     Dates: start: 20110504, end: 20110829
  3. GLIVEC [Suspect]
     Active Substance: IMATINIB MESYLATE
     Dosage: 300 MG, BID
     Route: 065
     Dates: start: 20080617
  4. SUTENT [Suspect]
     Active Substance: SUNITINIB MALATE
     Dosage: 12.5 MG, TID
     Route: 065
     Dates: start: 20110416
  5. SUTENT [Suspect]
     Active Substance: SUNITINIB MALATE
     Dosage: 12.5 MG, BID
     Route: 065
  6. GLIVEC [Suspect]
     Active Substance: IMATINIB MESYLATE
     Indication: GASTROINTESTINAL STROMAL TUMOUR
     Dosage: 200 MG, BID
     Route: 065
     Dates: start: 20070807
  7. SUTENT [Suspect]
     Active Substance: SUNITINIB MALATE
     Indication: PRODUCT USED FOR UNKNOWN INDICATION
     Dosage: 12.5 MG, BID
     Route: 065
     Dates: start: 20110412
  8. SUTENT [Suspect]
     Active Substance: SUNITINIB MALATE
     Dosage: 12.5 MG, TID
     Route: 065
     Dates: start: 20131008

REACTIONS (22)
  - Gastrointestinal inflammation [Unknown]
  - Metastases to liver [Not Recovered/Not Resolved]
  - Enterocutaneous fistula [Unknown]
  - Abdominal adhesions [Unknown]
  - Wound [Unknown]
  - Pelvic mass [Unknown]
  - Incarcerated incisional hernia [Unknown]
  - Bile duct stone [Unknown]
  - Intestinal obstruction [Unknown]
  - Ascites [Unknown]
  - Eyelid oedema [Unknown]
  - Intra-abdominal haemorrhage [Unknown]
  - Neoplasm progression [Unknown]
  - Oedema peripheral [Unknown]
  - Peritoneal haematoma [Unknown]
  - Diarrhoea [Unknown]
  - Gastrointestinal neoplasm [Unknown]
  - Cholecystitis acute [Unknown]
  - Dyspnoea [Unknown]
  - Anastomotic complication [Unknown]
  - Abdominal mass [Unknown]
  - Abdominal pain [Unknown]

NARRATIVE: CASE EVENT DATE: 20080604
